FAERS Safety Report 8828154 (Version 1)
Quarter: 2012Q4

REPORT INFORMATION
  Report Type: 
  Country: US (occurrence: US)
  Receive Date: 20121005
  Receipt Date: 20121005
  Transmission Date: 20130627
  Serious: No
  Sender: FDA-Public Use
  Company Number: US-PFIZER INC-2012245173

PATIENT
  Age: 64 Year
  Sex: Male
  Weight: 72.56 kg

DRUGS (10)
  1. CHANTIX [Suspect]
     Indication: SMOKING CESSATION THERAPY
     Dosage: 0.5 mg, daily
     Dates: start: 20120920, end: 201209
  2. CHANTIX [Suspect]
     Dosage: 1 mg, 2x/day
     Dates: start: 201209, end: 20121001
  3. FISH OIL [Concomitant]
     Indication: CARDIAC DISORDER
     Dosage: 1200 mg, daily
  4. PLAVIX [Concomitant]
     Indication: CARDIAC DISORDER
     Dosage: 75 mg, daily
  5. ISOSORBIDE [Concomitant]
     Indication: CARDIAC DISORDER
     Dosage: 30 mg, daily
  6. TWYNSTA [Concomitant]
     Indication: HYPERTENSION
     Dosage: 10/80mg, daily
  7. LABETALOL [Concomitant]
     Indication: HYPERTENSION
     Dosage: 600 mg, 3x/day
  8. PROTONIX [Concomitant]
     Dosage: 40 mg, daily
  9. FUROSEMIDE [Concomitant]
     Indication: RENAL DISORDER
     Dosage: 40 mg, daily
  10. LIPITOR [Concomitant]
     Indication: BLOOD CHOLESTEROL INCREASED
     Dosage: 40 mg, daily

REACTIONS (1)
  - Nausea [Recovered/Resolved]
